FAERS Safety Report 14514675 (Version 2)
Quarter: 2018Q1

REPORT INFORMATION
  Report Type: Spontaneous
  Country: BR (occurrence: BR)
  Receive Date: 20180209
  Receipt Date: 20180322
  Transmission Date: 20180509
  Serious: Yes (Hospitalization)
  Sender: FDA-Public Use
  Company Number: BR-BRISTOL-MYERS SQUIBB COMPANY-BMS-2018-011399

PATIENT
  Age: 40 Year
  Sex: Female

DRUGS (2)
  1. ELIQUIS [Suspect]
     Active Substance: APIXABAN
     Indication: THROMBOSIS PROPHYLAXIS
     Dosage: 2.5 MG, TID
     Route: 048
     Dates: start: 201801
  2. DIPYRONE [Concomitant]
     Active Substance: DIPYRONE
     Indication: PAIN
     Dosage: UNK
     Route: 048

REACTIONS (3)
  - Varicose ulceration [Not Recovered/Not Resolved]
  - Off label use [Unknown]
  - Thrombophlebitis [Unknown]

NARRATIVE: CASE EVENT DATE: 20180201
